FAERS Safety Report 6753684-7 (Version None)
Quarter: 2010Q2

REPORT INFORMATION
  Report Type: 
  Country: None (occurrence: None)
  Receive Date: 20100601
  Receipt Date: 20100517
  Transmission Date: 20101027
  Serious: Yes (Other)
  Sender: FDA-Public Use
  Company Number: 2010-1505

PATIENT
  Age: 44 Year
  Sex: Male
  Weight: 72.6 kg

DRUGS (2)
  1. DYSPORT [Suspect]
     Indication: SKIN WRINKLING
     Dosage: 60 UNITS (60 UNITS, SINGLE CYCLE), INTRAMUSCULAR
     Route: 030
     Dates: start: 20100429, end: 20100429
  2. SYNTHORID (LEVOTHYROXINE SODIUM) [Concomitant]

REACTIONS (5)
  - BIOPSY [None]
  - DRUG HYPERSENSITIVITY [None]
  - DYSPHAGIA [None]
  - HYPOAESTHESIA [None]
  - SWOLLEN TONGUE [None]
